FAERS Safety Report 4522539-0 (Version None)
Quarter: 2004Q4

REPORT INFORMATION
  Report Type: 
  Country: None (occurrence: None)
  Receive Date: 20041209
  Receipt Date: 20041130
  Transmission Date: 20050328
  Serious: Yes (Hospitalization)
  Sender: FDA-Public Use
  Company Number: FR-BRISTOL-MYERS SQUIBB COMPANY-12779120

PATIENT
  Age: 67 Year
  Sex: Female
  Weight: 82 kg

DRUGS (8)
  1. PARAPLATIN [Suspect]
     Indication: OVARIAN CANCER
     Dosage: 29-JUL-2004 TO 23-SEP-2004
     Route: 042
     Dates: start: 20040923, end: 20040923
  2. TAXOL [Concomitant]
     Indication: OVARIAN CANCER
     Dosage: 29-JUL-2004 TO 23-SEP-2004
     Route: 042
     Dates: start: 20040923, end: 20040923
  3. SOPROL [Concomitant]
     Indication: HYPERTENSION
  4. LOXEN [Concomitant]
     Indication: HYPERTENSION
  5. SOLUDECADRON [Concomitant]
  6. POLARAMINE [Concomitant]
  7. ZOPHREN [Concomitant]
     Dosage: 2 MG/ML/D
  8. AZANTAC [Concomitant]

REACTIONS (4)
  - DYSAESTHESIA [None]
  - DYSPNOEA [None]
  - HYPOTENSION [None]
  - VOMITING [None]
